FAERS Safety Report 16225670 (Version 1)
Quarter: 2019Q2

REPORT INFORMATION
  Report Type: Spontaneous
  Country: US (occurrence: US)
  Receive Date: 20190422
  Receipt Date: 20190422
  Transmission Date: 20190711
  Serious: Yes (Life-Threatening)
  Sender: FDA-Public Use
  Company Number: PHHY2019US089745

PATIENT
  Age: 52 Year
  Sex: Female

DRUGS (4)
  1. VANCOMYCIN [Suspect]
     Active Substance: VANCOMYCIN
     Indication: ENTEROBACTER BACTERAEMIA
     Dosage: UNK
     Route: 065
  2. VANCOMYCIN [Suspect]
     Active Substance: VANCOMYCIN
     Indication: STAPHYLOCOCCAL INFECTION
  3. COLISTIN [Suspect]
     Active Substance: COLISTIN
     Indication: ENTEROBACTER BACTERAEMIA
     Dosage: UNK
     Route: 065
  4. COLISTIN [Suspect]
     Active Substance: COLISTIN
     Indication: STAPHYLOCOCCAL INFECTION

REACTIONS (5)
  - Ascites [Unknown]
  - Venoocclusive liver disease [Recovered/Resolved]
  - Weight increased [Unknown]
  - Hepatomegaly [Unknown]
  - Product use in unapproved indication [Unknown]
